FAERS Safety Report 14576496 (Version 2)
Quarter: 2019Q1

REPORT INFORMATION
  Report Type: Spontaneous
  Country: US (occurrence: US)
  Receive Date: 20180227
  Receipt Date: 20190205
  Transmission Date: 20190417
  Serious: No
  Sender: FDA-Public Use
  Company Number: US-PFIZER INC-2018081401

PATIENT
  Age: 81 Year
  Sex: Female

DRUGS (2)
  1. EUCRISA [Suspect]
     Active Substance: CRISABOROLE
     Indication: PRURITUS
     Dosage: UNK UNK, 2X/DAY
     Route: 061
     Dates: start: 201802
  2. EUCRISA [Suspect]
     Active Substance: CRISABOROLE
     Indication: RASH

REACTIONS (1)
  - Drug ineffective for unapproved indication [Unknown]
